FAERS Safety Report 9472407 (Version 1)
Quarter: 2013Q3

REPORT INFORMATION
  Report Type: Spontaneous
  Country: US (occurrence: None)
  Receive Date: 20130821
  Receipt Date: 20130821
  Transmission Date: 20140515
  Serious: Yes (Hospitalization, Disabling, Other)
  Sender: FDA-Public Use
  Company Number: None

PATIENT
  Age: 26 Year
  Sex: Male
  Weight: 115 kg

DRUGS (1)
  1. LARIAM MEFLOQUIN [Suspect]
     Indication: MALARIA
     Dosage: TOOK ONE TABLETS 3RD JULY, 2013
     Route: 048

REACTIONS (5)
  - Sleep disorder [None]
  - Hallucination [None]
  - Paranoia [None]
  - Insomnia [None]
  - Economic problem [None]
